FAERS Safety Report 6494811-9 (Version None)
Quarter: 2009Q4

REPORT INFORMATION
  Report Type: 
  Country: None (occurrence: None)
  Receive Date: 20091214
  Receipt Date: 20090403
  Transmission Date: 20100525
  Serious: Yes (Hospitalization)
  Sender: FDA-Public Use
  Company Number: US-BRISTOL-MYERS SQUIBB COMPANY-14563860

PATIENT
  Age: 14 Year
  Sex: Male

DRUGS (3)
  1. ABILIFY [Suspect]
     Indication: HALLUCINATION, AUDITORY
     Dosage: 5MG + 2MG
     Dates: start: 20090316
  2. PRISTIQ [Concomitant]
     Dates: start: 20090316
  3. SYMBYAX [Concomitant]
     Dates: start: 20090101

REACTIONS (1)
  - SUICIDE ATTEMPT [None]
